FAERS Safety Report 7290850-9 (Version None)
Quarter: 2011Q1

REPORT INFORMATION
  Report Type: 
  Country: None (occurrence: None)
  Receive Date: 20110214
  Receipt Date: 20110127
  Transmission Date: 20110831
  Serious: Yes (Hospitalization)
  Sender: FDA-Public Use
  Company Number: FR-ALLERGAN-1101925US

PATIENT
  Age: 85 Year
  Sex: Female

DRUGS (8)
  1. PREDNISONE [Suspect]
     Indication: BRONCHITIS
     Dosage: 60 MG, QD
     Route: 048
     Dates: start: 20101203, end: 20101207
  2. LOVENOX [Concomitant]
     Indication: PRODUCT USED FOR UNKNOWN INDICATION
  3. TROSPIUM CHLORIDE [Suspect]
     Indication: URINARY INCONTINENCE
     Dosage: 20 MG, QD
     Route: 048
     Dates: start: 20101001, end: 20101207
  4. PANTOPRAZOLE [Concomitant]
     Indication: PRODUCT USED FOR UNKNOWN INDICATION
  5. CORDARONE [Concomitant]
     Indication: PRODUCT USED FOR UNKNOWN INDICATION
  6. TAREG [Concomitant]
     Indication: PRODUCT USED FOR UNKNOWN INDICATION
  7. AUGMENTIN '125' [Concomitant]
     Indication: BRONCHITIS
     Dosage: UNK
  8. PREVISCAN [Concomitant]
     Indication: PRODUCT USED FOR UNKNOWN INDICATION

REACTIONS (1)
  - HALLUCINATION, VISUAL [None]
